FAERS Safety Report 5899234-9 (Version None)
Quarter: 2008Q3

REPORT INFORMATION
  Report Type: 
  Country: None (occurrence: None)
  Receive Date: 20080925
  Receipt Date: 20080925
  Transmission Date: 20090109
  Serious: Yes (Death, Hospitalization, Other)
  Sender: FDA-Public Use
  Company Number: PHHO1997FR03253

PATIENT
  Sex: Male
  Weight: 66 kg

DRUGS (8)
  1. SANDIMMUNE [Suspect]
     Route: 048
     Dates: start: 19960724
  2. SOLUPRED [Concomitant]
     Dosage: UNSPECIFIED
     Route: 065
  3. IMUREL [Concomitant]
     Dosage: UNSPECIFIED
     Route: 065
  4. PRAZOSIN HCL [Concomitant]
     Dosage: UNSPECIFIED
     Route: 065
  5. TENORMIN [Concomitant]
     Dosage: UNSPECIFIED
     Route: 065
  6. ASPEGIC 325 [Concomitant]
     Dosage: UNSPECIFIED
     Route: 065
  7. LASIX [Concomitant]
     Dosage: UNSPECIFIED
     Route: 065
  8. ELISOR [Concomitant]
     Dosage: UNSPECIFIED
     Route: 065

REACTIONS (4)
  - DEATH [None]
  - HAEMOPTYSIS [None]
  - LUNG NEOPLASM MALIGNANT [None]
  - NEOPLASM MALIGNANT [None]
